FAERS Safety Report 14705675 (Version 1)
Quarter: 2018Q1

REPORT INFORMATION
  Report Type: Spontaneous
  Country: US (occurrence: US)
  Receive Date: 20180329
  Receipt Date: 20180329
  Transmission Date: 20180509
  Serious: Yes (Life-Threatening, Hospitalization)
  Sender: FDA-Public Use
  Company Number: None

PATIENT
  Age: 65 Year
  Sex: Male
  Weight: 44.45 kg

DRUGS (1)
  1. PROPOFOL. [Suspect]
     Active Substance: PROPOFOL
     Dates: start: 20171022, end: 20171117

REACTIONS (3)
  - Hypotension [None]
  - Renal impairment [None]
  - Bradycardia [None]

NARRATIVE: CASE EVENT DATE: 20171116
